FAERS Safety Report 12823124 (Version 1)
Quarter: 2016Q4

REPORT INFORMATION
  Report Type: Spontaneous
  Country: JP (occurrence: JP)
  Receive Date: 20161007
  Receipt Date: 20161007
  Transmission Date: 20170207
  Serious: Yes (Other)
  Sender: FDA-Public Use
  Company Number: JP-009507513-1610JPN000110

PATIENT

DRUGS (2)
  1. METHOTREXATE. [Concomitant]
     Active Substance: METHOTREXATE
     Dosage: DAILY DOSAGE UNKNOWN,ONCE A WEEK OR MONTH
     Route: 037
  2. TEMODAL [Suspect]
     Active Substance: TEMOZOLOMIDE
     Dosage: DAILY DOSE UNKNOWN
     Route: 048

REACTIONS (1)
  - Leukoencephalopathy [Unknown]
